FAERS Safety Report 7332183-8 (Version None)
Quarter: 2011Q1

REPORT INFORMATION
  Report Type: 
  Country: None (occurrence: None)
  Receive Date: 20110304
  Receipt Date: 20110218
  Transmission Date: 20110831
  Serious: Yes (Other)
  Sender: FDA-Public Use
  Company Number: PHHY2011EC13751

PATIENT
  Sex: Female

DRUGS (4)
  1. NORVASC [Concomitant]
     Indication: HYPERTENSION
     Dosage: 10 MG, UNK
     Dates: start: 20070101, end: 20110131
  2. ACLASTA [Suspect]
     Indication: OSTEOPOROSIS
     Dosage: 1 STAT
     Dates: start: 20100101
  3. ACLASTA [Suspect]
     Dosage: 1 STAT
     Dates: start: 20110101
  4. GLEEVEC [Suspect]
     Indication: GASTROINTESTINAL STROMAL TUMOUR
     Dosage: 400 MG, UNK
     Route: 048
     Dates: start: 20110121

REACTIONS (7)
  - VOMITING [None]
  - EXTRASYSTOLES [None]
  - NAUSEA [None]
  - TREMOR [None]
  - BLOOD PRESSURE DECREASED [None]
  - MIGRAINE [None]
  - ANXIETY [None]
